FAERS Safety Report 17521744 (Version 1)
Quarter: 2020Q1

REPORT INFORMATION
  Report Type: Spontaneous
  Country: DE (occurrence: DE)
  Receive Date: 20200310
  Receipt Date: 20200310
  Transmission Date: 20200409
  Serious: Yes (Other)
  Sender: FDA-Public Use
  Company Number: DE-PFIZER INC-2020095137

PATIENT
  Age: 28 Year
  Sex: Female
  Weight: 70 kg

DRUGS (1)
  1. CYTOTEC [Suspect]
     Active Substance: MISOPROSTOL
     Indication: LABOUR INDUCTION
     Dosage: 125 MG, UNK (1X 25 MG, 2X 50 MG)
     Route: 048
     Dates: start: 20191002, end: 20191002

REACTIONS (6)
  - Uterine atony [Recovered/Resolved]
  - Labour augmentation [Unknown]
  - Postpartum haemorrhage [Recovered/Resolved]
  - Haemorrhage [Recovered/Resolved]
  - Product use in unapproved indication [Unknown]
  - Off label use [Unknown]

NARRATIVE: CASE EVENT DATE: 20191002
